FAERS Safety Report 23294296 (Version 10)
Quarter: 2025Q1

REPORT INFORMATION
  Report Type: Report from Study
  Country: US (occurrence: US)
  Receive Date: 20231213
  Receipt Date: 20250328
  Transmission Date: 20250409
  Serious: Yes (Hospitalization, Other)
  Sender: TAKEDA
  Company Number: US-TAKEDA-2023TUS080266

PATIENT
  Age: 61 Year
  Sex: Male
  Weight: 73 kg

DRUGS (22)
  1. TEDUGLUTIDE [Suspect]
     Active Substance: TEDUGLUTIDE
     Indication: Short-bowel syndrome
     Dosage: 0.35 MILLILITER, QD
     Dates: start: 202308
  2. TEDUGLUTIDE [Suspect]
     Active Substance: TEDUGLUTIDE
     Indication: Abdominal discomfort
     Dosage: 3.9 MILLIGRAM, QD
  3. TEDUGLUTIDE [Suspect]
     Active Substance: TEDUGLUTIDE
     Dosage: 3.9 MILLIGRAM, QD
  4. TEDUGLUTIDE [Suspect]
     Active Substance: TEDUGLUTIDE
     Dosage: 3.9 MILLIGRAM, QD
  5. TEDUGLUTIDE [Suspect]
     Active Substance: TEDUGLUTIDE
     Dosage: 3.9 MILLIGRAM, QD
  6. TEDUGLUTIDE [Suspect]
     Active Substance: TEDUGLUTIDE
     Dosage: 3.9 MILLIGRAM, QD
  7. TEDUGLUTIDE [Suspect]
     Active Substance: TEDUGLUTIDE
     Dosage: 3.9 MILLIGRAM, QD
  8. TEDUGLUTIDE [Suspect]
     Active Substance: TEDUGLUTIDE
     Dosage: 3.9 MILLIGRAM, QD
  9. TEDUGLUTIDE [Suspect]
     Active Substance: TEDUGLUTIDE
     Dosage: 3.9 MILLIGRAM, QD
  10. LOPERAMIDE [Concomitant]
     Active Substance: LOPERAMIDE
  11. LOMOTIL [Concomitant]
     Active Substance: ATROPINE SULFATE\DIPHENOXYLATE HYDROCHLORIDE
  12. OPIUM TINCTURE [Concomitant]
     Active Substance: MORPHINE
  13. OCTREOTIDE ACETATE [Concomitant]
     Active Substance: OCTREOTIDE ACETATE
  14. PANTOPRAZOLE SODIUM [Concomitant]
     Active Substance: PANTOPRAZOLE SODIUM
  15. VITAMIN D3 [Concomitant]
     Active Substance: CHOLECALCIFEROL
  16. IRON [Concomitant]
     Active Substance: IRON
  17. ZYRTEC [Concomitant]
     Active Substance: CETIRIZINE HYDROCHLORIDE
  18. SUBOXONE [Concomitant]
     Active Substance: BUPRENORPHINE HYDROCHLORIDE\NALOXONE HYDROCHLORIDE
  19. PREDNISONE [Concomitant]
     Active Substance: PREDNISONE
  20. ROBINUL [Concomitant]
     Active Substance: GLYCOPYRROLATE
  21. MESTINON [Concomitant]
     Active Substance: PYRIDOSTIGMINE BROMIDE
  22. VYVGART [Concomitant]
     Active Substance: EFGARTIGIMOD ALFA-FCAB

REACTIONS (28)
  - Weight decreased [Not Recovered/Not Resolved]
  - Dysphagia [Not Recovered/Not Resolved]
  - Speech disorder [Not Recovered/Not Resolved]
  - Myasthenia gravis [Not Recovered/Not Resolved]
  - Sepsis [Unknown]
  - Facial paralysis [Not Recovered/Not Resolved]
  - Nervousness [Not Recovered/Not Resolved]
  - Graves^ disease [Unknown]
  - Obstruction [Unknown]
  - Cataract [Not Recovered/Not Resolved]
  - Gallbladder disorder [Unknown]
  - Cholelithiasis [Unknown]
  - Abdominal pain upper [Not Recovered/Not Resolved]
  - Nutritional condition abnormal [Unknown]
  - Weight increased [Unknown]
  - Stoma complication [Unknown]
  - Eating disorder [Unknown]
  - Skin induration [Unknown]
  - Gastrooesophageal reflux disease [Unknown]
  - Infusion site haemorrhage [Recovered/Resolved]
  - Upper-airway cough syndrome [Not Recovered/Not Resolved]
  - Pollakiuria [Unknown]
  - Wrong technique in product usage process [Unknown]
  - Weight fluctuation [Not Recovered/Not Resolved]
  - Dehydration [Not Recovered/Not Resolved]
  - Increased appetite [Not Recovered/Not Resolved]
  - Fluid retention [Not Recovered/Not Resolved]
  - Hypervolaemia [Unknown]

NARRATIVE: CASE EVENT DATE: 20230801
